FAERS Safety Report 14088596 (Version 1)
Quarter: 2017Q4

REPORT INFORMATION
  Report Type: Spontaneous
  Country: US (occurrence: US)
  Receive Date: 20171013
  Receipt Date: 20171013
  Transmission Date: 20180321
  Serious: Yes (Life-Threatening, Hospitalization)
  Sender: FDA-Public Use
  Company Number: US-009507513-1710USA004840

PATIENT
  Sex: Female

DRUGS (1)
  1. NEXPLANON [Suspect]
     Active Substance: ETONOGESTREL
     Indication: CONTRACEPTION
     Dosage: DOSE/FREQUENCY: ONE ROD EVERY THREE YEARS
     Route: 059

REACTIONS (3)
  - Postpartum haemorrhage [Unknown]
  - Retained placenta or membranes [Recovered/Resolved]
  - Maternal exposure during pregnancy [Recovered/Resolved]
